FAERS Safety Report 5799364-6 (Version None)
Quarter: 2008Q3

REPORT INFORMATION
  Report Type: 
  Country: None (occurrence: None)
  Receive Date: 20080703
  Receipt Date: 20080624
  Transmission Date: 20090109
  Serious: Yes (Other)
  Sender: FDA-Public Use
  Company Number: BR-PFIZER INC-2008053523

PATIENT
  Sex: Male
  Weight: 77 kg

DRUGS (3)
  1. GEODON [Suspect]
     Indication: SCHIZOPHRENIA
     Route: 048
  2. CLONAZEPAM [Concomitant]
  3. DEPAKENE [Concomitant]

REACTIONS (7)
  - DRY MOUTH [None]
  - FEELING ABNORMAL [None]
  - MUSCLE STRAIN [None]
  - SALIVARY HYPERSECRETION [None]
  - SOMNOLENCE [None]
  - SUICIDAL IDEATION [None]
  - TREMOR [None]
